FAERS Safety Report 10841277 (Version 4)
Quarter: 2015Q3

REPORT INFORMATION
  Report Type: Spontaneous
  Country: BR (occurrence: BR)
  Receive Date: 20150220
  Receipt Date: 20150817
  Transmission Date: 20151125
  Serious: Yes (Hospitalization, Other)
  Sender: FDA-Public Use
  Company Number: BR-ROCHE-1497503

PATIENT
  Age: 70 Year
  Sex: Female

DRUGS (2)
  1. MABTHERA [Suspect]
     Active Substance: RITUXIMAB
     Indication: RHEUMATOID ARTHRITIS
     Route: 042
     Dates: start: 201008, end: 2014
  2. PREDNISONE. [Concomitant]
     Active Substance: PREDNISONE
     Indication: ARTHRITIS
     Route: 065

REACTIONS (16)
  - Abasia [Not Recovered/Not Resolved]
  - Rheumatoid arthritis [Unknown]
  - Immunosuppression [Unknown]
  - Urosepsis [Recovered/Resolved]
  - Pulmonary sepsis [Recovered/Resolved]
  - Endocarditis [Recovered/Resolved]
  - Klebsiella sepsis [Recovered/Resolved with Sequelae]
  - Vascular dementia [Unknown]
  - Neurogenic bladder [Unknown]
  - Oesophageal disorder [Unknown]
  - Pneumonia [Unknown]
  - Dementia [Unknown]
  - Infection [Unknown]
  - Metabolic encephalopathy [Unknown]
  - Ischaemic stroke [Recovered/Resolved]
  - Bedridden [Not Recovered/Not Resolved]

NARRATIVE: CASE EVENT DATE: 201409
